FAERS Safety Report 9937304 (Version 1)
Quarter: 2014Q1

REPORT INFORMATION
  Report Type: Spontaneous
  Country: US (occurrence: US)
  Receive Date: 20140302
  Receipt Date: 20140302
  Transmission Date: 20141002
  Serious: Yes (Other)
  Sender: FDA-Public Use
  Company Number: US-AMGEN-USASP2014013663

PATIENT
  Age: 64 Year
  Sex: Female
  Weight: 74.38 kg

DRUGS (6)
  1. ENBREL [Suspect]
     Indication: PSORIATIC ARTHROPATHY
     Dosage: Q2WK
     Route: 065
  2. ENBREL [Suspect]
     Indication: RHEUMATOID ARTHRITIS
  3. HUMIRA [Suspect]
     Indication: RHEUMATOID ARTHRITIS
     Dosage: 40 MG, Q2WK
     Route: 065
     Dates: start: 2011, end: 2012
  4. LEVOTHYROXINE [Concomitant]
     Indication: THYROID DISORDER
     Dosage: UNK
  5. ATENOLOL [Concomitant]
     Indication: HYPERTENSION
     Dosage: UNK
     Dates: start: 1976
  6. LISINOPRIL [Concomitant]
     Indication: HYPERTENSION
     Dosage: UNK

REACTIONS (13)
  - Coronary artery occlusion [Unknown]
  - Aortic valve incompetence [Unknown]
  - Psoriatic arthropathy [Unknown]
  - Diabetes mellitus [Unknown]
  - Tendon rupture [Recovered/Resolved]
  - Neuralgia [Unknown]
  - Visual impairment [Unknown]
  - Cardiac murmur [Unknown]
  - Sinus congestion [Unknown]
  - Joint stiffness [Unknown]
  - Herpes zoster [Recovered/Resolved]
  - Ophthalmic herpes zoster [Unknown]
  - Oral candidiasis [Recovered/Resolved]
